FAERS Safety Report 9734717 (Version 3)
Quarter: 2013Q4

REPORT INFORMATION
  Report Type: Spontaneous
  Country: JP (occurrence: JP)
  Receive Date: 20131206
  Receipt Date: 20131223
  Transmission Date: 20140711
  Serious: Yes (Other)
  Sender: FDA-Public Use
  Company Number: JP-JNJFOC-20131012175

PATIENT
  Age: 78 Year
  Sex: Male

DRUGS (10)
  1. FINIBAX [Suspect]
     Indication: CELLULITIS
     Route: 041
     Dates: start: 20130918, end: 20130922
  2. ARTIST [Concomitant]
     Indication: ANGINA PECTORIS
     Route: 048
  3. ISOSORBIDE [Concomitant]
     Indication: ANGINA PECTORIS
     Route: 048
  4. LIPITOR [Concomitant]
     Indication: HYPERCHOLESTEROLAEMIA
     Route: 048
  5. OLMETEC [Concomitant]
     Indication: HYPERTENSION
     Route: 048
  6. LANSOPRAZOLE [Concomitant]
     Indication: GASTRIC ULCER
     Route: 048
  7. NIFEDIPINE [Concomitant]
     Indication: ANGINA PECTORIS
     Route: 048
  8. VOGLIBOSE [Concomitant]
     Indication: DIABETES MELLITUS
     Route: 048
  9. NIKORANMART [Concomitant]
     Indication: ANGINA PECTORIS
     Route: 048
  10. BAYASPIRIN [Concomitant]
     Indication: ANGINA PECTORIS
     Route: 048

REACTIONS (3)
  - Drug-induced liver injury [Recovering/Resolving]
  - Renal failure acute [Not Recovered/Not Resolved]
  - Anaemia [Unknown]
